FAERS Safety Report 13523941 (Version 1)
Quarter: 2017Q2

REPORT INFORMATION
  Report Type: Spontaneous
  Country: US (occurrence: US)
  Receive Date: 20170508
  Receipt Date: 20170508
  Transmission Date: 20170830
  Serious: No
  Sender: FDA-Public Use
  Company Number: US-VIFOR (INTERNATIONAL) INC.-VIT-2017-00924

PATIENT
  Age: 40 Year
  Sex: Female

DRUGS (2)
  1. VELTASSA [Suspect]
     Active Substance: PATIROMER
     Indication: PRODUCT USED FOR UNKNOWN INDICATION
     Route: 065
  2. VELTASSA [Suspect]
     Active Substance: PATIROMER
     Dosage: 1/2 OF AN 8.4 GM PACKET 2 OR 3 TIMES PER WEEK
     Route: 065
     Dates: start: 201701

REACTIONS (5)
  - Palpitations [Recovered/Resolved]
  - Nausea [Unknown]
  - Off label use [Unknown]
  - Heart rate irregular [Unknown]
  - Inappropriate schedule of drug administration [Unknown]

NARRATIVE: CASE EVENT DATE: 201701
